FAERS Safety Report 4888464-0 (Version None)
Quarter: 2005Q4

REPORT INFORMATION
  Report Type: 
  Country: None (occurrence: None)
  Receive Date: 20051207
  Receipt Date: 20050713
  Transmission Date: 20060501
  Serious: Yes (Hospitalization, Other)
  Sender: FDA-Public Use
  Company Number: 2005101551

PATIENT
  Sex: Male
  Weight: 99.7913 kg

DRUGS (1)
  1. VIAGRA [Suspect]
     Indication: ERECTILE DYSFUNCTION
     Dosage: 100 MG (100 MG) ORAL
     Route: 048
     Dates: start: 20000101

REACTIONS (4)
  - EPISTAXIS [None]
  - HYPERSENSITIVITY [None]
  - SINUS DISORDER [None]
  - SINUSITIS [None]
